FAERS Safety Report 20187444 (Version 1)
Quarter: 2021Q4

REPORT INFORMATION
  Report Type: Spontaneous
  Country: US (occurrence: None)
  Receive Date: 20211214
  Receipt Date: 20211214
  Transmission Date: 20220303
  Serious: Yes (Death)
  Sender: FDA-Public Use
  Company Number: None

PATIENT
  Age: 69 Year
  Sex: Female

DRUGS (1)
  1. RYDAPT [Suspect]
     Active Substance: MIDOSTAURIN
     Indication: Leukaemia recurrent
     Route: 048
     Dates: start: 20210511, end: 20211211

REACTIONS (1)
  - Death [None]

NARRATIVE: CASE EVENT DATE: 20211211
